FAERS Safety Report 17201096 (Version 2)
Quarter: 2020Q1

REPORT INFORMATION
  Report Type: Spontaneous
  Country: US (occurrence: US)
  Receive Date: 20191226
  Receipt Date: 20200121
  Transmission Date: 20200409
  Serious: No
  Sender: FDA-Public Use
  Company Number: US-GLAXOSMITHKLINE-US2019AMR233039

PATIENT
  Age: 73 Year
  Sex: Female

DRUGS (1)
  1. INCRUSE ELLIPTA [Suspect]
     Active Substance: UMECLIDINIUM BROMIDE
     Indication: PRODUCT USED FOR UNKNOWN INDICATION
     Dosage: UNK
     Route: 065
     Dates: start: 201912

REACTIONS (6)
  - Tongue disorder [Unknown]
  - Oral pain [Unknown]
  - Adverse drug reaction [Unknown]
  - Dysphonia [Unknown]
  - Dry mouth [Unknown]
  - Heart rate increased [Unknown]

NARRATIVE: CASE EVENT DATE: 201912
